FAERS Safety Report 5644954-4 (Version None)
Quarter: 2008Q1

REPORT INFORMATION
  Report Type: 
  Country: None (occurrence: None)
  Receive Date: 20080229
  Receipt Date: 20071112
  Transmission Date: 20080703
  Serious: No
  Sender: FDA-Public Use
  Company Number: A0695208A

PATIENT
  Sex: Female

DRUGS (1)
  1. VALTREX [Suspect]
     Indication: PROPHYLAXIS
     Dosage: .5CAP PER DAY
     Route: 048

REACTIONS (5)
  - MEDICATION ERROR [None]
  - OEDEMA MOUTH [None]
  - ORAL HERPES [None]
  - PAIN [None]
  - SPEECH DISORDER [None]
